FAERS Safety Report 4588172-X (Version None)
Quarter: 2005Q1

REPORT INFORMATION
  Report Type: 
  Country: None (occurrence: None)
  Receive Date: 20050221
  Receipt Date: 20050209
  Transmission Date: 20050727
  Serious: Yes (Congenital Anomaly)
  Sender: FDA-Public Use
  Company Number: US-GLAXOSMITHKLINE-A0545545B

PATIENT
  Sex: Male
  Weight: 2.1 kg

DRUGS (7)
  1. TRIZIVIR [Suspect]
     Indication: HIV INFECTION
     Dosage: 2TAB PER DAY
     Dates: start: 20040621, end: 20041122
  2. COMBIVIR [Suspect]
     Indication: HIV INFECTION
     Dosage: 2TAB PER DAY
     Dates: start: 20040804, end: 20040922
  3. RETROVIR [Suspect]
     Indication: HIV INFECTION
     Dates: start: 20041222, end: 20041222
  4. EPZICOM [Suspect]
     Indication: HIV INFECTION
     Dosage: 1TAB PER DAY
     Dates: start: 20040922, end: 20041122
  5. ATAZANAVIR [Concomitant]
     Indication: HIV INFECTION
     Dosage: 400MG SINGLE DOSE
     Dates: start: 20040621, end: 20041122
  6. VIRACEPT [Concomitant]
     Indication: HIV INFECTION
     Dosage: 2500MG PER DAY
     Dates: start: 20040804, end: 20041122
  7. VIREAD [Concomitant]
     Indication: HIV INFECTION
     Dosage: 300MG PER DAY
     Dates: start: 20040804, end: 20041122

REACTIONS (2)
  - DRUG EXPOSURE DURING PREGNANCY [None]
  - PIGMENTED NAEVUS [None]
